FAERS Safety Report 10647828 (Version 1)
Quarter: 2014Q4

REPORT INFORMATION
  Report Type: Spontaneous
  Country: US (occurrence: US)
  Receive Date: 20141212
  Receipt Date: 20141212
  Transmission Date: 20150529
  Serious: Yes (Other)
  Sender: FDA-Public Use
  Company Number: US-BRISTOL-MYERS SQUIBB COMPANY-21677828

PATIENT
  Sex: Female
  Weight: 93.42 kg

DRUGS (17)
  1. PROGESTIN [Concomitant]
     Active Substance: PROGESTERONE
     Route: 065
  2. KLONOPIN [Concomitant]
     Active Substance: CLONAZEPAM
  3. LEVOTHYROXINE [Concomitant]
     Active Substance: LEVOTHYROXINE
  4. LANSOPRAZOLE. [Concomitant]
     Active Substance: LANSOPRAZOLE
     Indication: GASTROOESOPHAGEAL REFLUX DISEASE
  5. PROZAC [Concomitant]
     Active Substance: FLUOXETINE HYDROCHLORIDE
  6. ADDERALL [Concomitant]
     Active Substance: AMPHETAMINE ASPARTATE\AMPHETAMINE SULFATE\DEXTROAMPHETAMINE SACCHARATE\DEXTROAMPHETAMINE SULFATE
  7. MELOXICAM. [Concomitant]
     Active Substance: MELOXICAM
     Indication: FIBROMYALGIA
  8. ABILIFY [Suspect]
     Active Substance: ARIPIPRAZOLE
     Indication: MAJOR DEPRESSION
     Dosage: 60 MG, UNK
     Route: 065
  9. BUPROPION HCL [Concomitant]
     Active Substance: BUPROPION HYDROCHLORIDE
  10. METHYLTESTOSTERONE [Concomitant]
     Active Substance: METHYLTESTOSTERONE
  11. TRAZODONE [Concomitant]
     Active Substance: TRAZODONE HYDROCHLORIDE
  12. LANSOPRAZOLE. [Concomitant]
     Active Substance: LANSOPRAZOLE
     Indication: GASTRIC DISORDER
  13. ABILIFY [Suspect]
     Active Substance: ARIPIPRAZOLE
     Indication: BIPOLAR DISORDER
     Dosage: 15 MG, QD
     Route: 065
  14. PERPHENAZINE. [Concomitant]
     Active Substance: PERPHENAZINE
     Route: 065
  15. TRIACETIN. [Concomitant]
     Active Substance: TRIACETIN
  16. LORAZEPAM. [Concomitant]
     Active Substance: LORAZEPAM
  17. IBUPROFEN. [Concomitant]
     Active Substance: IBUPROFEN
     Indication: FIBROMYALGIA

REACTIONS (3)
  - Overdose [Unknown]
  - Polyp [Unknown]
  - Cholecystectomy [Unknown]
